FAERS Safety Report 8453165-9 (Version None)
Quarter: 2012Q2

REPORT INFORMATION
  Report Type: 
  Country: None (occurrence: None)
  Receive Date: 20120620
  Receipt Date: 20120509
  Transmission Date: 20120825
  Serious: No
  Sender: FDA-Public Use
  Company Number: US-VERTEX PHARMACEUTICALS INC.-AE-2012-006823

PATIENT
  Sex: Female
  Weight: 72.64 kg

DRUGS (4)
  1. PEGASYS [Concomitant]
     Indication: HEPATITIS C
     Route: 058
     Dates: start: 20120327, end: 20120410
  2. INCIVEK [Suspect]
     Indication: HEPATITIS C
     Route: 048
     Dates: start: 20120327, end: 20120416
  3. RIBAVIRIN [Concomitant]
     Indication: HEPATITIS C
     Route: 048
     Dates: start: 20120327, end: 20120416
  4. TOPROL-XL [Concomitant]
     Indication: HYPERTENSION
     Route: 048

REACTIONS (8)
  - VISION BLURRED [None]
  - DEPRESSION [None]
  - PARANOIA [None]
  - DIZZINESS [None]
  - HAEMORRHOIDS [None]
  - ASTHENIA [None]
  - HEADACHE [None]
  - DISTURBANCE IN ATTENTION [None]
